FAERS Safety Report 13104578 (Version 1)
Quarter: 2017Q1

REPORT INFORMATION
  Report Type: Spontaneous
  Country: US (occurrence: US)
  Receive Date: 20170110
  Receipt Date: 20170110
  Transmission Date: 20170428
  Serious: Yes (Life-Threatening, Disabling, Other)
  Sender: FDA-Public Use
  Company Number: None

PATIENT
  Age: 63 Year
  Sex: Female
  Weight: 58.5 kg

DRUGS (10)
  1. ZYRTEC (CETIRIZINE HCL) [Concomitant]
  2. BIOTIN [Concomitant]
     Active Substance: BIOTIN
  3. MULTI- VITAMIN [Concomitant]
  4. MAGNESIUM [Concomitant]
     Active Substance: MAGNESIUM
  5. CLOBETOSOL PROPIONATE [Concomitant]
  6. CALCIUM [Concomitant]
     Active Substance: CALCIUM
  7. IBUPROPHEN [Concomitant]
     Active Substance: IBUPROFEN
  8. REPATHA [Suspect]
     Active Substance: EVOLOCUMAB
     Indication: BLOOD CHOLESTEROL INCREASED
     Dosage: ?          QUANTITY:1 INJECTION(S);OTHER FREQUENCY:EVERY 2 WEEKS;?
     Route: 058
     Dates: start: 20160303, end: 20160330
  9. FINACEA [Concomitant]
     Active Substance: AZELAIC ACID
  10. ALPRAZOLAM. [Concomitant]
     Active Substance: ALPRAZOLAM

REACTIONS (1)
  - Drug hypersensitivity [None]

NARRATIVE: CASE EVENT DATE: 20160417
